FAERS Safety Report 9385201 (Version 1)
Quarter: 2013Q2

REPORT INFORMATION
  Report Type: Spontaneous
  Country: US (occurrence: None)
  Receive Date: 20130628
  Receipt Date: 20130628
  Transmission Date: 20140414
  Serious: Yes (Hospitalization, Disabling, Other)
  Sender: FDA-Public Use
  Company Number: AUR-APL-2013-05238

PATIENT
  Age: 59 Year
  Sex: Female
  Weight: 80 kg

DRUGS (7)
  1. LISINOPRIL (LISINOPRIL) [Suspect]
     Indication: BLOOD PRESSURE
  2. ATENOLOL (ATENOLOL) [Suspect]
     Indication: BLOOD PRESSURE
  3. SEROQUEL (QUETIAPINE FUMARATE) [Suspect]
     Indication: DEPRESSION
     Dosage: 100MG A.M. 200MG P.M.?
     Route: 048
     Dates: end: 2012
  4. SEROQUEL (QUETIAPINE FUMARATE) [Suspect]
     Indication: ARTHRITIS
     Dosage: 100MG A.M. 200MG P.M.?
     Route: 048
     Dates: end: 2012
  5. SEROQUEL (QUETIAPINE FUMARATE) [Suspect]
     Indication: RHEUMATOID ARTHRITIS
     Dosage: 100MG A.M. 200MG P.M.?
     Route: 048
     Dates: end: 2012
  6. FUROSEMIDE (FUROSEMIDE) [Concomitant]
  7. DEXTRO (DEXTROMETHORPHAN HYDROBROMIDE) [Concomitant]

REACTIONS (17)
  - Intentional drug misuse [None]
  - Hand deformity [None]
  - Sensation of heaviness [None]
  - Joint stiffness [None]
  - Joint effusion [None]
  - Feeling abnormal [None]
  - Blood pressure decreased [None]
  - Heart rate decreased [None]
  - Pain [None]
  - Muscle spasms [None]
  - Muscle spasms [None]
  - Therapeutic response unexpected [None]
  - Oedema peripheral [None]
  - Drug dose omission [None]
  - Myalgia [None]
  - Carpal tunnel syndrome [None]
  - Condition aggravated [None]
